FAERS Safety Report 14752934 (Version 1)
Quarter: 2018Q2

REPORT INFORMATION
  Report Type: Spontaneous
  Country: US (occurrence: US)
  Receive Date: 20180412
  Receipt Date: 20180412
  Transmission Date: 20180711
  Serious: No
  Sender: FDA-Public Use
  Company Number: US-FERRINGPH-2017FE02689

PATIENT
  Sex: Male
  Weight: 76.19 kg

DRUGS (2)
  1. FIRMAGON [Suspect]
     Active Substance: DEGARELIX ACETATE
     Indication: PROSTATE CANCER STAGE IV
     Dosage: UNK, MONTHLY
     Route: 058
     Dates: start: 201705
  2. XTANDI [Concomitant]
     Active Substance: ENZALUTAMIDE
     Indication: PRODUCT USED FOR UNKNOWN INDICATION
     Dosage: 40 MG, UNK
     Route: 065

REACTIONS (3)
  - Prostatic specific antigen increased [Unknown]
  - Product administered at inappropriate site [Unknown]
  - Prostatic specific antigen decreased [Unknown]

NARRATIVE: CASE EVENT DATE: 2017
